FAERS Safety Report 7303542-4 (Version None)
Quarter: 2011Q1

REPORT INFORMATION
  Report Type: 
  Country: None (occurrence: None)
  Receive Date: 20110221
  Receipt Date: 20110217
  Transmission Date: 20110831
  Serious: Yes (Death, Hospitalization, Other)
  Sender: FDA-Public Use
  Company Number: PHHY2010BR61900

PATIENT
  Sex: Male

DRUGS (9)
  1. SIMVASTATIN [Concomitant]
     Indication: CARDIOMYOPATHY
     Dosage: 1 TABLET/DAY
     Route: 048
  2. OMEPRAZOLE [Concomitant]
     Indication: GASTRIC DISORDER
     Dosage: 1 TABLET/DAY
     Route: 048
  3. CARVEDILOL [Concomitant]
     Indication: CARDIOMYOPATHY
     Dosage: 2 TABLETS/DAY
     Route: 048
  4. CLORANA [Concomitant]
     Indication: HYPERTENSION
     Dosage: 2 TABLETS/DAY
     Route: 048
  5. FORASEQ [Suspect]
     Dosage: 12/400 MCG, TWICE A DAY
     Dates: start: 20100101
  6. METFORMIN [Suspect]
     Indication: TYPE 2 DIABETES MELLITUS
     Dosage: 3 TABLETS/DAY
  7. CAPTOPRIL [Concomitant]
     Indication: HYPERTENSION
     Dosage: 3 TABLETS/DAY
     Route: 048
  8. ACETYLSALICYLIC ACID [Concomitant]
     Indication: CARDIOMYOPATHY
     Dosage: 2 TABLETS/DAY
     Route: 048
  9. ATENOLOL [Concomitant]
     Indication: HYPERTENSION
     Dosage: 2 TABLETS/DAY
     Route: 048

REACTIONS (8)
  - CHRONIC OBSTRUCTIVE PULMONARY DISEASE [None]
  - CONGESTIVE CARDIOMYOPATHY [None]
  - TYPE 2 DIABETES MELLITUS [None]
  - BLOOD GLUCOSE DECREASED [None]
  - ACUTE RESPIRATORY FAILURE [None]
  - CARDIAC FAILURE [None]
  - DYSPNOEA [None]
  - GENERAL PHYSICAL HEALTH DETERIORATION [None]
